FAERS Safety Report 6439285-9 (Version None)
Quarter: 2009Q4

REPORT INFORMATION
  Report Type: 
  Country: None (occurrence: None)
  Receive Date: 20091113
  Receipt Date: 20091104
  Transmission Date: 20100525
  Serious: Yes (Hospitalization, Other)
  Sender: FDA-Public Use
  Company Number: US-BAYER-200933335NA

PATIENT
  Age: 45 Year
  Sex: Female

DRUGS (2)
  1. MIRENA [Suspect]
     Indication: CONTRACEPTION
     Dosage: CONTINUOUS
     Route: 015
     Dates: start: 20060501, end: 20090811
  2. TAMOXIFEN CITRATE [Concomitant]
     Indication: FAMILIAL RISK FACTOR
     Dates: start: 20060801

REACTIONS (3)
  - PYREXIA [None]
  - STAPHYLOCOCCAL BACTERAEMIA [None]
  - VIRAL UPPER RESPIRATORY TRACT INFECTION [None]
